FAERS Safety Report 5391533-2 (Version None)
Quarter: 2007Q3

REPORT INFORMATION
  Report Type: 
  Country: None (occurrence: None)
  Receive Date: 20070719
  Receipt Date: 20070710
  Transmission Date: 20080115
  Serious: Yes (Other)
  Sender: FDA-Public Use
  Company Number: JP-PFIZER INC-2007057370

PATIENT
  Age: 69 Year
  Sex: Female

DRUGS (7)
  1. SOLU-MEDROL [Suspect]
     Indication: CONTRAST MEDIA ALLERGY
     Dosage: DAILY DOSE:500MG
     Route: 042
     Dates: start: 20061211, end: 20061213
  2. ISCOTIN [Concomitant]
     Dosage: DAILY DOSE:300MG
     Route: 048
  3. FAMOTIDINE [Concomitant]
     Dosage: DAILY DOSE:500MG
     Route: 048
  4. PYDOXAL [Concomitant]
     Route: 048
  5. PREDONINE [Concomitant]
  6. ACE INHIBITOR NOS [Concomitant]
  7. ANGIOTENSIN II ANTAGONISTS [Concomitant]

REACTIONS (3)
  - DYSPNOEA [None]
  - GENERALISED OEDEMA [None]
  - HYPERTENSION [None]
